FAERS Safety Report 18022446 (Version 1)
Quarter: 2020Q3

REPORT INFORMATION
  Report Type: Spontaneous
  Country: FR (occurrence: FR)
  Receive Date: 20200715
  Receipt Date: 20200715
  Transmission Date: 20201103
  Serious: Yes (Other)
  Sender: FDA-Public Use
  Company Number: FR-ROCHE-2641741

PATIENT
  Age: 83 Year
  Sex: Male
  Weight: 52.8 kg

DRUGS (7)
  1. DOLIPRANE [Concomitant]
     Active Substance: ACETAMINOPHEN
  2. ESOMEPRAZOLE. [Concomitant]
     Active Substance: ESOMEPRAZOLE MAGNESIUM
  3. OROCAL [Concomitant]
  4. PREDNISOLONE. [Concomitant]
     Active Substance: PREDNISOLONE
  5. LOVENOX [Concomitant]
     Active Substance: ENOXAPARIN SODIUM
  6. DIFFU K [Concomitant]
     Active Substance: POTASSIUM CHLORIDE
  7. RIVOTRIL [Suspect]
     Active Substance: CLONAZEPAM
     Indication: MYOCLONUS
     Route: 048
     Dates: start: 20200317

REACTIONS (3)
  - Hypotonia [Recovered/Resolved]
  - Somnolence [Recovered/Resolved]
  - Dysphagia [Recovered/Resolved]

NARRATIVE: CASE EVENT DATE: 20200331
